FAERS Safety Report 20335294 (Version 1)
Quarter: 2022Q1

REPORT INFORMATION
  Report Type: Spontaneous
  Country: US (occurrence: None)
  Receive Date: 20220113
  Receipt Date: 20220113
  Transmission Date: 20220424
  Serious: Yes (Death)
  Sender: FDA-Public Use
  Company Number: None

PATIENT
  Age: 41 Year
  Sex: Male
  Weight: 113.2 kg

DRUGS (10)
  1. BARICITINIB [Suspect]
     Active Substance: BARICITINIB
     Indication: COVID-19
     Dosage: FREQUENCY : DAILY;?
     Route: 048
     Dates: start: 20211231, end: 20220111
  2. LEVOFLOXACIN [Concomitant]
     Active Substance: LEVOFLOXACIN
     Dates: start: 20220111, end: 20220111
  3. ENOXAPARIN [Concomitant]
     Dates: start: 20220103, end: 20220111
  4. DEXAMETHASONE [Concomitant]
     Active Substance: DEXAMETHASONE
     Dates: start: 20211228, end: 20220111
  5. PANTOPRAZOLE [Concomitant]
     Dates: start: 20220102, end: 20220111
  6. CEFTRIAXONE [Concomitant]
     Active Substance: CEFTRIAXONE
     Dates: start: 20211228, end: 20220103
  7. ENOXAPARIN [Concomitant]
     Dates: start: 20211231, end: 20220102
  8. AZITHROMYCIN [Concomitant]
     Dates: start: 20211228, end: 20220101
  9. ENOXAPARIN [Concomitant]
     Dates: start: 20211229, end: 20211231
  10. REMDESIVIR [Concomitant]
     Dates: start: 20211230, end: 20211230

REACTIONS (4)
  - Cardio-respiratory arrest [None]
  - Pneumonia [None]
  - Leukocytosis [None]
  - Neutrophilia [None]

NARRATIVE: CASE EVENT DATE: 20220111
